FAERS Safety Report 4455057-9 (Version None)
Quarter: 2004Q3

REPORT INFORMATION
  Report Type: 
  Country: None (occurrence: None)
  Receive Date: 20040917
  Receipt Date: 20040830
  Transmission Date: 20050211
  Serious: Yes (Hospitalization)
  Sender: FDA-Public Use
  Company Number: USA040568494

PATIENT
  Age: 58 Year
  Sex: Female
  Weight: 55 kg

DRUGS (11)
  1. FORTEO [Suspect]
     Indication: OSTEOPOROSIS
     Dosage: 20 UG/1 DAY
     Dates: start: 20040201
  2. FOSAMAX [Concomitant]
  3. SYNTHROID [Concomitant]
  4. OYSTER SHELL CALCIUM(CALCIUM CARBONATE) [Concomitant]
  5. CELEBREX [Concomitant]
  6. ZOCOR [Concomitant]
  7. NOVOLOG [Concomitant]
  8. RITALIN [Concomitant]
  9. WELLBUTRIN [Concomitant]
  10. XANAX (ALPRAZOLAM DUM) [Concomitant]
  11. DARVOCET-N 100 [Concomitant]

REACTIONS (1)
  - DIABETES MELLITUS [None]
